FAERS Safety Report 5613120-0 (Version None)
Quarter: 2008Q1

REPORT INFORMATION
  Report Type: 
  Country: None (occurrence: None)
  Receive Date: 20080204
  Receipt Date: 20080123
  Transmission Date: 20080703
  Serious: Yes (Other)
  Sender: FDA-Public Use
  Company Number: GB-PFIZER INC-2008009060

PATIENT
  Age: 25 Year
  Sex: Male
  Weight: 77 kg

DRUGS (1)
  1. CHANTIX [Suspect]
     Indication: SMOKING CESSATION THERAPY
     Dosage: TEXT:1MG BID EVERY DAY TDD:2MG
     Route: 048
     Dates: start: 20071114, end: 20071224

REACTIONS (4)
  - AFFECT LABILITY [None]
  - APATHY [None]
  - DEPRESSED MOOD [None]
  - TEARFULNESS [None]
